FAERS Safety Report 6271447-6 (Version None)
Quarter: 2009Q3

REPORT INFORMATION
  Report Type: 
  Country: None (occurrence: None)
  Receive Date: 20090717
  Receipt Date: 20090707
  Transmission Date: 20100115
  Serious: Yes (Other)
  Sender: FDA-Public Use
  Company Number: PHEH2009US04274

PATIENT
  Sex: Male

DRUGS (3)
  1. DIOVAN HCT [Suspect]
     Dosage: 160/12.5MG, UNK
  2. ATENOLOL [Concomitant]
  3. ARTHROTEC [Concomitant]
     Indication: DIABETES MELLITUS

REACTIONS (2)
  - BLOOD PRESSURE INCREASED [None]
  - BLOOD URINE PRESENT [None]
